FAERS Safety Report 7067593-X (Version None)
Quarter: 2010Q4

REPORT INFORMATION
  Report Type: 
  Country: None (occurrence: None)
  Receive Date: 20101028
  Receipt Date: 20101025
  Transmission Date: 20110411
  Serious: Yes (Other)
  Sender: FDA-Public Use
  Company Number: GB-BRISTOL-MYERS SQUIBB COMPANY-15352800

PATIENT
  Sex: Male

DRUGS (3)
  1. ARIPIPRAZOLE [Suspect]
     Dosage: DOSE WAS INCREASED FROM 15 MG TO 30MG.
  2. CLOZAPINE [Concomitant]
     Dosage: TAKEN AS 300 MG AT NIGHT AND 100 MG IN THE MORNING.
  3. CITALOPRAM HYDROBROMIDE [Concomitant]

REACTIONS (3)
  - HYPNAGOGIC HALLUCINATION [None]
  - SALIVARY HYPERSECRETION [None]
  - SEDATION [None]
